FAERS Safety Report 6722315-4 (Version None)
Quarter: 2010Q2

REPORT INFORMATION
  Report Type: 
  Country: None (occurrence: None)
  Receive Date: 20100512
  Receipt Date: 20100503
  Transmission Date: 20101027
  Serious: Yes (Other)
  Sender: FDA-Public Use
  Company Number: US-PFIZER INC-2010055945

PATIENT
  Age: 80 Year
  Sex: Female

DRUGS (4)
  1. LIPITOR [Suspect]
     Dosage: UNK
  2. BAYCOL [Suspect]
  3. WELCHOL [Suspect]
     Dosage: UNK
  4. VASERETIC [Concomitant]
     Dosage: UNK

REACTIONS (3)
  - HEADACHE [None]
  - LIVER DISORDER [None]
  - MYALGIA [None]
